FAERS Safety Report 19597903 (Version 1)
Quarter: 2021Q3

REPORT INFORMATION
  Report Type: Other
  Country: US (occurrence: US)
  Receive Date: 20210722
  Receipt Date: 20210722
  Transmission Date: 20211014
  Serious: Yes (Other)
  Sender: FDA-Public Use
  Company Number: US-APOTEX-2021AP020719

PATIENT
  Age: 62 Year
  Sex: Female

DRUGS (2)
  1. RANITIDINE TABLETS [Suspect]
     Active Substance: RANITIDINE HYDROCHLORIDE
     Indication: GASTROOESOPHAGEAL REFLUX DISEASE
     Dosage: OTHER (PERIODS OF 6?8 WEEKS DAILY USE FOLLOWED BY PERIODS OF NON?USE)
     Route: 065
     Dates: start: 199701, end: 202003
  2. ZANTAC [Suspect]
     Active Substance: RANITIDINE HYDROCHLORIDE
     Indication: GASTROOESOPHAGEAL REFLUX DISEASE
     Dosage: OCCASIONAL (PERIODS OF 6?8 WEEKS OF DAILY USE, FOLLOWED BY PERIODS OF NON?USE)
     Route: 065
     Dates: start: 199301, end: 202003

REACTIONS (1)
  - Breast cancer [Recovered/Resolved]

NARRATIVE: CASE EVENT DATE: 20150603
